FAERS Safety Report 9118809 (Version 1)
Quarter: 2013Q1

REPORT INFORMATION
  Report Type: Spontaneous
  Country: US (occurrence: None)
  Receive Date: 20130221
  Receipt Date: 20130221
  Transmission Date: 20140127
  Serious: Yes (Other)
  Sender: FDA-Public Use
  Company Number: None

PATIENT
  Age: 22 Year
  Sex: Female

DRUGS (1)
  1. DEXTROAMPHETAMINE MIXED SALTER 20MG ACTAVIS EL [Suspect]
     Indication: ATTENTION DEFICIT/HYPERACTIVITY DISORDER
     Route: 048
     Dates: start: 20121116, end: 20121220

REACTIONS (3)
  - Rash maculo-papular [None]
  - Lip oedema [None]
  - Face oedema [None]
